FAERS Safety Report 15096113 (Version 6)
Quarter: 2018Q3

REPORT INFORMATION
  Report Type: Report from Study
  Country: None (occurrence: DE)
  Receive Date: 20180702
  Receipt Date: 20180802
  Transmission Date: 20181010
  Serious: Yes (Hospitalization)
  Sender: FDA-Public Use
  Company Number: DE-ABBVIE-18P-062-2401190-00

PATIENT
  Age: 31 Year
  Sex: Male
  Weight: 80 kg

DRUGS (6)
  1. VENETOCLAX. [Suspect]
     Active Substance: VENETOCLAX
     Route: 048
     Dates: start: 20180611
  2. IBRUTINIB [Suspect]
     Active Substance: IBRUTINIB
     Indication: CHRONIC LYMPHOCYTIC LEUKAEMIA
     Route: 048
     Dates: start: 20171115, end: 20180406
  3. VENETOCLAX. [Suspect]
     Active Substance: VENETOCLAX
     Route: 048
     Dates: start: 20180604
  4. VENETOCLAX. [Suspect]
     Active Substance: VENETOCLAX
     Indication: CHRONIC LYMPHOCYTIC LEUKAEMIA
     Route: 048
     Dates: start: 20171206
  5. OBINUTUZUMAB. [Concomitant]
     Active Substance: OBINUTUZUMAB
     Indication: CHRONIC LYMPHOCYTIC LEUKAEMIA
     Route: 042
     Dates: start: 20171115, end: 20180316
  6. VENETOCLAX. [Suspect]
     Active Substance: VENETOCLAX
     Dosage: 1 TABL. AT 50 MG), DAYS 1?7; 100 MG (1 TABL. AT 100 MG), DAYS 8?14
     Route: 048
     Dates: start: 20180528

REACTIONS (2)
  - Migraine [Not Recovered/Not Resolved]
  - Meningitis enteroviral [Recovered/Resolved]

NARRATIVE: CASE EVENT DATE: 20180622
